FAERS Safety Report 4619288-7 (Version None)
Quarter: 2005Q2

REPORT INFORMATION
  Report Type: 
  Country: None (occurrence: None)
  Receive Date: 20050321
  Receipt Date: 20040203
  Transmission Date: 20051028
  Serious: Yes (Other)
  Sender: FDA-Public Use
  Company Number: 2004-02-0162

PATIENT
  Sex: Male

DRUGS (3)
  1. PEG-INTRON [Suspect]
     Dosage: SUBCUTANEOUS
     Route: 058
     Dates: start: 20031101
  2. REBETOL [Suspect]
     Dosage: ORAL
     Route: 048
     Dates: start: 20031101
  3. PROCRIT [Suspect]
     Dosage: 10,000 U BIW

REACTIONS (1)
  - HAEMOGLOBIN DECREASED [None]
